FAERS Safety Report 8148089 (Version 3)
Quarter: 2013Q1

REPORT INFORMATION
  Report Type: Spontaneous
  Country: US (occurrence: None)
  Receive Date: 20110908
  Receipt Date: 20130228
  Transmission Date: 20140127
  Serious: Yes (Death)
  Sender: FDA-Public Use
  Company Number: JPI-P-016840

PATIENT
  Age: 70 Year
  Sex: Male

DRUGS (1)
  1. XYREM [Suspect]
     Indication: CATAPLEXY
     Dosage: 6 GM (3 GM, 2 IN 1 D)
     Route: 048
     Dates: start: 20050628

REACTIONS (3)
  - Haemoptysis [None]
  - Pulmonary mass [None]
  - Lung neoplasm malignant [None]
